FAERS Safety Report 7386466-6 (Version None)
Quarter: 2011Q1

REPORT INFORMATION
  Report Type: 
  Country: None (occurrence: None)
  Receive Date: 20110331
  Receipt Date: 20110322
  Transmission Date: 20110831
  Serious: Yes (Other)
  Sender: FDA-Public Use
  Company Number: PL-JNJFOC-20110205551

PATIENT
  Age: 56 Year
  Sex: Male
  Weight: 125 kg

DRUGS (15)
  1. GOLIMUMAB [Suspect]
     Route: 058
  2. OMEPRAZOLE [Concomitant]
     Route: 048
  3. DOXAZOSIN [Concomitant]
     Indication: HYPERTENSION
     Route: 048
  4. METHYLPREDNISOLONE [Concomitant]
     Indication: RHEUMATOID ARTHRITIS
     Route: 048
  5. FOLIC ACID [Concomitant]
     Indication: PROPHYLAXIS
     Route: 048
  6. VALSARTAN [Concomitant]
     Indication: HYPERTENSION
     Route: 048
  7. POTASSIUM CHLORIDE [Concomitant]
     Indication: HYPERTENSION
     Route: 048
  8. METHOTREXATE [Concomitant]
     Indication: RHEUMATOID ARTHRITIS
     Route: 048
  9. INSULIN [Concomitant]
  10. DICLOFENAC SODIUM [Concomitant]
     Indication: RHEUMATOID ARTHRITIS
     Route: 048
  11. FUROSEMID [Concomitant]
     Indication: HYPERTENSION
     Route: 048
  12. ATORVASTATIN CALCIUM [Concomitant]
     Indication: HYPERTENSION
     Route: 048
  13. GOLIMUMAB [Suspect]
     Indication: RHEUMATOID ARTHRITIS
     Route: 058
  14. METHIMAZOLE [Concomitant]
     Indication: HYPERTHYROIDISM
     Route: 048
  15. METOPROLOL [Concomitant]
     Indication: HYPERTENSION
     Route: 048

REACTIONS (1)
  - NEOPLASM SKIN [None]
